FAERS Safety Report 6285865-3 (Version None)
Quarter: 2009Q3

REPORT INFORMATION
  Report Type: 
  Country: None (occurrence: None)
  Receive Date: 20090724
  Receipt Date: 20090713
  Transmission Date: 20100115
  Serious: Yes (Hospitalization, Other)
  Sender: FDA-Public Use
  Company Number: 220001M09IRL

PATIENT
  Age: 14 Year
  Sex: Female
  Weight: 37 kg

DRUGS (1)
  1. SAIZEN [Suspect]
     Indication: BODY HEIGHT BELOW NORMAL
     Dosage: 1.4 MG, 1 IN 1 DAYS, INTRAMUSCULAR
     Route: 030
     Dates: start: 20071201, end: 20090409

REACTIONS (7)
  - APLASTIC ANAEMIA [None]
  - CONTUSION [None]
  - DISEASE COMPLICATION [None]
  - MYELODYSPLASTIC SYNDROME [None]
  - PANCYTOPENIA [None]
  - PYREXIA [None]
  - RASH [None]
